FAERS Safety Report 10762554 (Version 4)
Quarter: 2015Q3

REPORT INFORMATION
  Report Type: Report from Study
  Country: CA (occurrence: CA)
  Receive Date: 20150204
  Receipt Date: 20150908
  Transmission Date: 20151125
  Serious: Yes (Other)
  Sender: FDA-Public Use
  Company Number: PHHY2015CA013095

PATIENT
  Age: 71 Year
  Sex: Female

DRUGS (2)
  1. ZOMETA [Suspect]
     Active Substance: ZOLEDRONIC ACID
     Indication: BREAST CANCER
     Dosage: 4 MG, EVERY 26 WEEKS
     Route: 042
     Dates: start: 20140806
  2. EPIRUBICIN [Concomitant]
     Active Substance: EPIRUBICIN
     Indication: PRODUCT USED FOR UNKNOWN INDICATION
     Route: 065

REACTIONS (9)
  - Blood pressure systolic increased [Unknown]
  - Vein disorder [Unknown]
  - Poor venous access [Unknown]
  - Injury associated with device [Unknown]
  - Vein collapse [Unknown]
  - Respiratory rate increased [Unknown]
  - Cataract [Unknown]
  - Skin discolouration [Unknown]
  - Lymphoedema [Unknown]

NARRATIVE: CASE EVENT DATE: 20150225
